FAERS Safety Report 9377003 (Version 2)
Quarter: 2013Q3

REPORT INFORMATION
  Report Type: Spontaneous
  Country: US (occurrence: US)
  Receive Date: 20130701
  Receipt Date: 20130729
  Transmission Date: 20140515
  Serious: No
  Sender: FDA-Public Use
  Company Number: US-PFIZER INC-2013192515

PATIENT
  Age: 66 Year
  Sex: Male

DRUGS (8)
  1. SUTENT [Suspect]
     Indication: RENAL CANCER
     Dosage: 50 MG, UNK
     Dates: start: 20130611
  2. AMLODIPINE BESYLATE [Concomitant]
     Dosage: UNK
  3. IMIPRAMINE PAMOATE [Concomitant]
     Dosage: UNK
  4. LISINOPRIL [Concomitant]
     Dosage: UNK
  5. NIACIN [Concomitant]
     Dosage: UNK
  6. OXYBUTYNIN CHLORIDE [Concomitant]
     Dosage: UNK
  7. SIMVASTATIN [Concomitant]
     Dosage: UNK
  8. PROPRANOLOL HCL ER [Concomitant]
     Dosage: UNK

REACTIONS (3)
  - Blood glucose decreased [Unknown]
  - Neuropathy peripheral [Unknown]
  - Oral pain [Unknown]
